FAERS Safety Report 14049721 (Version 1)
Quarter: 2017Q4

REPORT INFORMATION
  Report Type: Spontaneous
  Country: IN (occurrence: IN)
  Receive Date: 20171005
  Receipt Date: 20171005
  Transmission Date: 20180321
  Serious: Yes (Death, Hospitalization)
  Sender: FDA-Public Use
  Company Number: IN-PFIZER INC-2017427188

PATIENT
  Age: 50 Year
  Sex: Female

DRUGS (2)
  1. PALBACE [Suspect]
     Active Substance: PALBOCICLIB
     Indication: BREAST CANCER METASTATIC
     Dosage: 125 MG, CYCLIC (ONCE DAILY)
     Route: 048
  2. AROMASIN [Concomitant]
     Active Substance: EXEMESTANE
     Dosage: UNK

REACTIONS (7)
  - Dyspnoea [Unknown]
  - White blood cell count decreased [Unknown]
  - Cardiac arrest [Fatal]
  - Abdominal discomfort [Unknown]
  - Peripheral swelling [Unknown]
  - Gait disturbance [Unknown]
  - Swelling [Unknown]
